FAERS Safety Report 6738181-7 (Version None)
Quarter: 2010Q2

REPORT INFORMATION
  Report Type: 
  Country: None (occurrence: None)
  Receive Date: 20100524
  Receipt Date: 20100513
  Transmission Date: 20101027
  Serious: Yes (Other)
  Sender: FDA-Public Use
  Company Number: US-JNJFOC-20100506271

PATIENT
  Age: 51 Year
  Sex: Male

DRUGS (3)
  1. INVEGA [Suspect]
     Indication: SCHIZOPHRENIA
     Route: 048
  2. TEGRETOL [Concomitant]
     Indication: CONVULSION
     Route: 048
  3. AN UNKNOWN MEDICATION [Concomitant]
     Indication: CONVULSION
     Route: 048

REACTIONS (1)
  - BLOOD GLUCOSE INCREASED [None]
